FAERS Safety Report 11388839 (Version 9)
Quarter: 2018Q1

REPORT INFORMATION
  Report Type: Report from Study
  Country: US (occurrence: US)
  Receive Date: 20150817
  Receipt Date: 20180215
  Transmission Date: 20180508
  Serious: Yes (Congenital Anomaly, Other)
  Sender: FDA-Public Use
  Company Number: PHEH2015US009963

PATIENT
  Age: 52 Year
  Sex: Female

DRUGS (10)
  1. KEPPRA [Concomitant]
     Active Substance: LEVETIRACETAM
     Indication: PRODUCT USED FOR UNKNOWN INDICATION
     Route: 065
  2. DISURYL [Concomitant]
     Indication: PRODUCT USED FOR UNKNOWN INDICATION
     Route: 065
  3. SODIUM BICARBONATE. [Concomitant]
     Active Substance: SODIUM BICARBONATE
     Indication: PRODUCT USED FOR UNKNOWN INDICATION
     Route: 065
  4. AFINITOR [Suspect]
     Active Substance: EVEROLIMUS
     Indication: ANGIOMYOLIPOMA
     Dosage: 2.5 MG, QD
     Route: 048
     Dates: start: 20140419
  5. LIPITOR [Concomitant]
     Active Substance: ATORVASTATIN CALCIUM
     Indication: PRODUCT USED FOR UNKNOWN INDICATION
     Route: 065
  6. FLONASE [Concomitant]
     Active Substance: FLUTICASONE PROPIONATE
     Indication: PRODUCT USED FOR UNKNOWN INDICATION
     Route: 065
  7. ALBUTEROL. [Concomitant]
     Active Substance: ALBUTEROL
     Indication: PRODUCT USED FOR UNKNOWN INDICATION
     Route: 065
  8. VITAMIN D [Concomitant]
     Active Substance: CHOLECALCIFEROL
     Indication: SUPPLEMENTATION THERAPY
     Route: 065
  9. ASCORBIC ACID. [Concomitant]
     Active Substance: ASCORBIC ACID
     Indication: PRODUCT USED FOR UNKNOWN INDICATION
     Route: 065
  10. MULTI VITAMIN [Concomitant]
     Active Substance: VITAMINS
     Indication: PRODUCT USED FOR UNKNOWN INDICATION
     Route: 065

REACTIONS (21)
  - Pain in extremity [Unknown]
  - Animal bite [Unknown]
  - Fatigue [Unknown]
  - Epistaxis [Unknown]
  - Lung disorder [Unknown]
  - Limb discomfort [Unknown]
  - Lymphadenopathy [Unknown]
  - Asthenia [Unknown]
  - Sepsis [Not Recovered/Not Resolved]
  - Lipase increased [Not Recovered/Not Resolved]
  - Feeling abnormal [Unknown]
  - Blood creatine increased [Unknown]
  - Myalgia [Unknown]
  - Muscle spasms [Unknown]
  - Hypoxia [Unknown]
  - Tunnel vision [Unknown]
  - Somnolence [Unknown]
  - Nail disorder [Unknown]
  - Lymphangioleiomyomatosis [Not Recovered/Not Resolved]
  - Head discomfort [Unknown]
  - Onychoclasis [Unknown]

NARRATIVE: CASE EVENT DATE: 20150513
